FAERS Safety Report 5003960-3 (Version None)
Quarter: 2006Q2

REPORT INFORMATION
  Report Type: 
  Country: None (occurrence: None)
  Receive Date: 20060515
  Receipt Date: 20060515
  Transmission Date: 20061013
  Serious: Yes (Life-Threatening, Hospitalization)
  Sender: FDA-Public Use
  Company Number: None

PATIENT
  Age: 42 Year
  Sex: Male
  Weight: 110.2241 kg

DRUGS (2)
  1. AVASTIN [Suspect]
     Dosage: 565 MG    IV
     Route: 042
     Dates: start: 20060123, end: 20060419
  2. AVASTIN [Suspect]

REACTIONS (1)
  - INTESTINAL PERFORATION [None]
